FAERS Safety Report 16852231 (Version 1)
Quarter: 2019Q3

REPORT INFORMATION
  Report Type: Spontaneous
  Country: US (occurrence: US)
  Receive Date: 20190925
  Receipt Date: 20190925
  Transmission Date: 20191005
  Serious: No
  Sender: FDA-Public Use
  Company Number: US-SA-2019SA259521

PATIENT
  Age: 58 Year
  Sex: Female

DRUGS (1)
  1. KEVZARA [Suspect]
     Active Substance: SARILUMAB
     Indication: RHEUMATOID ARTHRITIS
     Dosage: 200 MG, QOW
     Dates: start: 20190831, end: 2019

REACTIONS (2)
  - Tongue blistering [Recovered/Resolved]
  - Lip blister [Recovered/Resolved]

NARRATIVE: CASE EVENT DATE: 201909
